FAERS Safety Report 4970084-0 (Version None)
Quarter: 2006Q2

REPORT INFORMATION
  Report Type: 
  Country: None (occurrence: None)
  Receive Date: 20060406
  Receipt Date: 20060317
  Transmission Date: 20061013
  Serious: Yes (Hospitalization, Other)
  Sender: FDA-Public Use
  Company Number: US_0508120886

PATIENT
  Age: 56 Year
  Sex: Male
  Weight: 90.7 kg

DRUGS (11)
  1. ZYPREXA [Suspect]
     Indication: BIPOLAR DISORDER
     Dosage: SEE IMAGE
     Dates: start: 19970101, end: 20050207
  2. ZYPREXA [Suspect]
     Indication: BIPOLAR DISORDER
     Dosage: SEE IMAGE
     Dates: start: 20050207, end: 20050214
  3. ZYPREXA [Suspect]
     Indication: BIPOLAR DISORDER
     Dosage: SEE IMAGE
     Dates: start: 20050214, end: 20050627
  4. ZYPREXA [Suspect]
     Indication: BIPOLAR DISORDER
     Dosage: SEE IMAGE
     Dates: start: 20010205
  5. SEROQUEL [Concomitant]
  6. ABILIFY [Concomitant]
  7. DIAZEPAM [Concomitant]
  8. TEGRETOL [Concomitant]
  9. CELEXA [Concomitant]
  10. COGENTIN [Concomitant]
  11. VISTARIL (HYDROXYZINE EMBONATE) [Concomitant]

REACTIONS (19)
  - BLOOD TRIGLYCERIDES INCREASED [None]
  - CYST [None]
  - DIABETES MELLITUS INADEQUATE CONTROL [None]
  - DIABETES MELLITUS INSULIN-DEPENDENT [None]
  - DIABETIC COMA [None]
  - FACIAL PALSY [None]
  - FACIAL PARESIS [None]
  - HEPATIC CIRRHOSIS [None]
  - HEPATIC STEATOSIS [None]
  - HEPATOSPLENOMEGALY [None]
  - HIGH DENSITY LIPOPROTEIN DECREASED [None]
  - HYPERTENSION [None]
  - HYPOAESTHESIA [None]
  - LOW DENSITY LIPOPROTEIN DECREASED [None]
  - NEUROPATHY [None]
  - POLLAKIURIA [None]
  - REFUSAL OF TREATMENT BY PATIENT [None]
  - SMALL INTESTINAL OBSTRUCTION [None]
  - WEIGHT DECREASED [None]
